APPROVED DRUG PRODUCT: CARBOPLATIN
Active Ingredient: CARBOPLATIN
Strength: 600MG/60ML (10MG/ML)
Dosage Form/Route: INJECTABLE;INTRAVENOUS
Application: A077861 | Product #004 | TE Code: AP
Applicant: TEYRO LABS PRIVATE LTD
Approved: Jan 18, 2007 | RLD: No | RS: No | Type: RX